FAERS Safety Report 17745645 (Version 1)
Quarter: 2020Q2

REPORT INFORMATION
  Report Type: Spontaneous
  Country: US (occurrence: US)
  Receive Date: 20200505
  Receipt Date: 20200505
  Transmission Date: 20200714
  Serious: No
  Sender: FDA-Public Use
  Company Number: None

PATIENT
  Age: 64 Year
  Sex: Female
  Weight: 128.25 kg

DRUGS (5)
  1. OMEPRAZOLE 40 MG [Concomitant]
     Active Substance: OMEPRAZOLE
  2. JANUVIA 50 MG [Concomitant]
  3. METFORMIIN  1000 MG [Concomitant]
  4. CARVEDILOL 25 MG [Concomitant]
     Active Substance: CARVEDILOL
  5. BOTOX [Suspect]
     Active Substance: ONABOTULINUMTOXINA
     Indication: MIGRAINE
     Dosage: ?          QUANTITY:30 INJECTION(S);OTHER FREQUENCY:ONCE;?
     Route: 058

REACTIONS (11)
  - Urinary retention [None]
  - Decreased appetite [None]
  - Pruritus [None]
  - Insomnia [None]
  - Drug ineffective [None]
  - Eye pruritus [None]
  - Nausea [None]
  - Vomiting [None]
  - Ocular hyperaemia [None]
  - Migraine [None]
  - Diabetes mellitus [None]

NARRATIVE: CASE EVENT DATE: 20200417
